FAERS Safety Report 25913828 (Version 2)
Quarter: 2025Q4

REPORT INFORMATION
  Report Type: Report from Study
  Country: CN (occurrence: CN)
  Receive Date: 20251013
  Receipt Date: 20251016
  Transmission Date: 20260117
  Serious: Yes (Hospitalization, Other)
  Sender: SANOFI AVENTIS
  Company Number: CN-SA-2025SA299811

PATIENT
  Age: 57 Year
  Sex: Female
  Weight: 58 kg

DRUGS (14)
  1. INSULIN GLARGINE [Suspect]
     Active Substance: INSULIN GLARGINE
     Indication: Type 2 diabetes mellitus
     Dosage: 10 U, HS
     Route: 058
     Dates: start: 20250702, end: 20250708
  2. INSULIN GLARGINE [Suspect]
     Active Substance: INSULIN GLARGINE
     Dosage: 13 U, HS
     Route: 058
     Dates: start: 20250709, end: 20250715
  3. INSULIN GLARGINE [Suspect]
     Active Substance: INSULIN GLARGINE
     Dosage: 16 U, HS
     Route: 058
     Dates: start: 20250716, end: 20250722
  4. INSULIN GLARGINE [Suspect]
     Active Substance: INSULIN GLARGINE
     Dosage: 19 U, HS
     Route: 058
     Dates: start: 20250723, end: 20250729
  5. INSULIN GLARGINE [Suspect]
     Active Substance: INSULIN GLARGINE
     Dosage: 22 U, HS
     Route: 058
     Dates: start: 20250730, end: 20250807
  6. INSULIN GLARGINE [Suspect]
     Active Substance: INSULIN GLARGINE
     Dosage: 20 U, HS
     Route: 058
     Dates: start: 20250808, end: 20250913
  7. FELODIPINE [Concomitant]
     Active Substance: FELODIPINE
     Indication: Hypertension
     Dosage: 5.000MG QD
     Route: 048
     Dates: start: 2024
  8. IRBESARTAN [Concomitant]
     Active Substance: IRBESARTAN
     Indication: Hypertension
     Dosage: QD
     Route: 048
     Dates: start: 2024, end: 20250911
  9. IRBESARTAN [Concomitant]
     Active Substance: IRBESARTAN
     Dosage: 75.000MG QD
     Route: 048
     Dates: start: 20250927
  10. ROSUVASTATIN CALCIUM [Concomitant]
     Active Substance: ROSUVASTATIN CALCIUM
     Indication: Hyperlipidaemia
     Dosage: QD
     Route: 048
     Dates: start: 2024, end: 20250911
  11. METFORMIN HYDROCHLORIDE [Concomitant]
     Active Substance: METFORMIN HYDROCHLORIDE
     Indication: Type 2 diabetes mellitus
     Dosage: BID
     Route: 048
     Dates: start: 20250227, end: 20250913
  12. GLIQUIDONE [Concomitant]
     Active Substance: GLIQUIDONE
     Indication: Type 2 diabetes mellitus
     Dosage: TID
     Route: 048
     Dates: start: 20250702, end: 20250911
  13. INSULIN ASPART\INSULIN DEGLUDEC [Concomitant]
     Active Substance: INSULIN ASPART\INSULIN DEGLUDEC
     Indication: Type 2 diabetes mellitus
     Dosage: 10 U IN THE MORNING AND 10 U IN THE EVENING, SUBCUTANEOUS INJECTION, AC
     Route: 058
     Dates: start: 20250914, end: 20250917
  14. INSULIN ASPART\INSULIN DEGLUDEC [Concomitant]
     Active Substance: INSULIN ASPART\INSULIN DEGLUDEC
     Dosage: 12.000U BID
     Route: 058
     Dates: start: 20250917

REACTIONS (1)
  - Tubulointerstitial nephritis [Not Recovered/Not Resolved]

NARRATIVE: CASE EVENT DATE: 20250101
